FAERS Safety Report 7815524-4 (Version None)
Quarter: 2011Q4

REPORT INFORMATION
  Report Type: 
  Country: None (occurrence: None)
  Receive Date: 20111014
  Receipt Date: 20111007
  Transmission Date: 20120403
  Serious: Yes (Life-Threatening, Hospitalization)
  Sender: FDA-Public Use
  Company Number: US-BAYER-2010-003330

PATIENT
  Age: 26 Year
  Sex: Female

DRUGS (3)
  1. YASMIN [Suspect]
     Indication: CONTRACEPTION
     Dosage: UNK
     Dates: start: 20071101, end: 20081201
  2. DROSPIRENONE AND ETHINYL ESTRADIOL [Suspect]
     Indication: CONTRACEPTION
     Dosage: UNK
     Dates: start: 20090101, end: 20091101
  3. YAZ [Suspect]
     Indication: CONTRACEPTION

REACTIONS (6)
  - GALLBLADDER DISORDER [None]
  - INJURY [None]
  - PAIN [None]
  - FEAR [None]
  - ANXIETY [None]
  - CHOLECYSTITIS CHRONIC [None]
